FAERS Safety Report 21957659 (Version 1)
Quarter: 2023Q1

REPORT INFORMATION
  Report Type: Spontaneous
  Country: US (occurrence: None)
  Receive Date: 20230203
  Receipt Date: 20230203
  Transmission Date: 20230418
  Serious: No
  Sender: FDA-Public Use
  Company Number: None

PATIENT
  Sex: Female

DRUGS (1)
  1. REBIF REBIDOSE [Suspect]
     Active Substance: INTERFERON BETA-1A

REACTIONS (5)
  - Injection site bruising [None]
  - Insomnia [None]
  - Mood swings [None]
  - Chills [None]
  - Influenza like illness [None]

NARRATIVE: CASE EVENT DATE: 20230113
